FAERS Safety Report 24653218 (Version 1)
Quarter: 2024Q4

REPORT INFORMATION
  Report Type: Report from Study
  Country: HN (occurrence: HN)
  Receive Date: 20241122
  Receipt Date: 20241122
  Transmission Date: 20250115
  Serious: Yes (Other)
  Sender: NOVARTIS
  Company Number: HN-002147023-NVSC2024HN224027

PATIENT
  Sex: Female

DRUGS (1)
  1. HYDROCHLOROTHIAZIDE\VALSARTAN [Suspect]
     Active Substance: HYDROCHLOROTHIAZIDE\VALSARTAN
     Indication: Hypertension
     Dosage: 1 DOSAGE FORM, QD
     Route: 048

REACTIONS (3)
  - Hypertension [Recovering/Resolving]
  - Cholelithiasis [Unknown]
  - Drug ineffective [Unknown]
